FAERS Safety Report 14836629 (Version 3)
Quarter: 2018Q4

REPORT INFORMATION
  Report Type: Spontaneous
  Country: US (occurrence: US)
  Receive Date: 20180502
  Receipt Date: 20181207
  Transmission Date: 20190204
  Serious: Yes (Death, Hospitalization, Other)
  Sender: FDA-Public Use
  Company Number: US-ASTRAZENECA-2018SE55438

PATIENT
  Sex: Female
  Weight: 93 kg

DRUGS (46)
  1. NEXIUM [Suspect]
     Active Substance: ESOMEPRAZOLE MAGNESIUM
     Indication: GASTROOESOPHAGEAL REFLUX DISEASE
     Route: 048
     Dates: start: 2010, end: 2016
  2. PANTOPRAZOLE [Suspect]
     Active Substance: PANTOPRAZOLE
     Indication: GASTROOESOPHAGEAL REFLUX DISEASE
     Route: 065
     Dates: start: 2015, end: 2017
  3. PROCRIT [Concomitant]
     Active Substance: ERYTHROPOIETIN
     Dosage: 20000 UNITS
  4. CEFAZOLIN [Concomitant]
     Active Substance: CEFAZOLIN
  5. HEPARIN [Concomitant]
     Active Substance: HEPARIN SODIUM
  6. ZOFRAN [Concomitant]
     Active Substance: ONDANSETRON HYDROCHLORIDE
     Dosage: 4 MG
  7. COREG [Concomitant]
     Active Substance: CARVEDILOL
     Dosage: 6.25 MG TABLET
  8. DESITIN MAX [Concomitant]
     Dosage: 40 %
  9. TRAMADOL. [Concomitant]
     Active Substance: TRAMADOL
  10. LOPRESSOR [Concomitant]
     Active Substance: METOPROLOL TARTRATE
     Dosage: 50 MG
     Route: 048
  11. LISINOPRIL. [Concomitant]
     Active Substance: LISINOPRIL
     Route: 048
  12. VICODIN [Concomitant]
     Active Substance: ACETAMINOPHEN\HYDROCODONE BITARTRATE
     Dosage: 5-500 MG
  13. TRIAMCINOLONE ACETONIDE. [Concomitant]
     Active Substance: TRIAMCINOLONE ACETONIDE
     Dosage: 0.1 % OINT
  14. BACTROBAN [Concomitant]
     Active Substance: MUPIROCIN\MUPIROCIN CALCIUM
     Dosage: 2 % OINT
  15. AMITRIPTYLINE [Concomitant]
     Active Substance: AMITRIPTYLINE
  16. VENOFER [Concomitant]
     Active Substance: IRON SUCROSE
     Dosage: 200 MG
  17. GENTAMICIN. [Concomitant]
     Active Substance: GENTAMICIN
  18. COMBIVENT [Concomitant]
     Active Substance: ALBUTEROL SULFATE\IPRATROPIUM BROMIDE
     Dosage: 20-100 MCG/ACTUATION
  19. PLAVIX [Concomitant]
     Active Substance: CLOPIDOGREL BISULFATE
     Dosage: 75 MG
  20. PROMETHAZINE-CODEINE [Concomitant]
     Active Substance: CODEINE PHOSPHATE\PROMETHAZINE
     Dosage: 6.25-10 MG/5ML
  21. CHANTIX [Concomitant]
     Active Substance: VARENICLINE TARTRATE
  22. PANTOPRAZOLE [Suspect]
     Active Substance: PANTOPRAZOLE
     Indication: GASTROOESOPHAGEAL REFLUX DISEASE
     Route: 048
  23. PRILOSEC OTC [Concomitant]
     Active Substance: OMEPRAZOLE MAGNESIUM
     Dosage: 20 MG, DAILY
  24. DESENEX NOS [Concomitant]
     Active Substance: CLOTRIMAZOLE OR MICONAZOLE NITRATE
  25. IMDUR [Concomitant]
     Active Substance: ISOSORBIDE MONONITRATE
     Dosage: 30 MG
  26. MEPIVACAINE [Concomitant]
     Active Substance: MEPIVACAINE\MEPIVACAINE HYDROCHLORIDE
  27. ASPIRIN. [Concomitant]
     Active Substance: ASPIRIN
     Route: 048
  28. CAPSICUM [Concomitant]
     Active Substance: CAPSICUM
     Dosage: 0.075 %, TOPICAL CREAM
  29. CLINDAMYCIN. [Concomitant]
     Active Substance: CLINDAMYCIN
     Dosage: 300 MG
  30. PREDNISOLONE. [Concomitant]
     Active Substance: PREDNISOLONE
     Dosage: 1% OPTH SUSP
  31. FERROUS SULFATE. [Concomitant]
     Active Substance: FERROUS SULFATE
     Dosage: 325 MG
  32. PEPCID [Concomitant]
     Active Substance: FAMOTIDINE
     Dosage: 20 MG
  33. SENNA [Concomitant]
     Active Substance: SENNA LEAF\SENNOSIDES\SENNOSIDES A AND B
     Route: 048
  34. MYDRIACYL [Concomitant]
     Active Substance: TROPICAMIDE
     Dosage: 1 % OPHTHALMIC
     Dates: start: 20151022, end: 20160712
  35. NEXIUM [Suspect]
     Active Substance: ESOMEPRAZOLE MAGNESIUM
     Indication: GASTROOESOPHAGEAL REFLUX DISEASE
     Route: 048
     Dates: start: 2010, end: 2015
  36. NEXIUM [Suspect]
     Active Substance: ESOMEPRAZOLE MAGNESIUM
     Indication: GASTROOESOPHAGEAL REFLUX DISEASE
     Dosage: 40 MG
     Route: 048
  37. LIPITOR [Concomitant]
     Active Substance: ATORVASTATIN CALCIUM
  38. LYRICA [Concomitant]
     Active Substance: PREGABALIN
  39. LANTUS [Concomitant]
     Active Substance: INSULIN GLARGINE
     Dosage: 100 UNITS/ML
     Route: 058
  40. PERCOCET [Concomitant]
     Active Substance: ACETAMINOPHEN\OXYCODONE HYDROCHLORIDE
     Dosage: 5-325 MG
  41. VITAMIN D3 [Concomitant]
     Active Substance: CHOLECALCIFEROL
     Dosage: 1000 UNITS TABLET
  42. GABAPENTIN. [Concomitant]
     Active Substance: GABAPENTIN
  43. OXYCODONE [Concomitant]
     Active Substance: OXYCODONE
  44. MULTIVITAMIN [Concomitant]
     Active Substance: VITAMINS
  45. CIPRO [Concomitant]
     Active Substance: CIPROFLOXACIN HYDROCHLORIDE
     Dosage: 500 MG
  46. MYDFRIN [Concomitant]
     Active Substance: PHENYLEPHRINE HYDROCHLORIDE
     Dosage: 2.5 % OPHTHALMIC

REACTIONS (8)
  - Acute kidney injury [Unknown]
  - Pneumonia [Fatal]
  - Chronic kidney disease [Not Recovered/Not Resolved]
  - Renal failure [Not Recovered/Not Resolved]
  - Tubulointerstitial nephritis [Not Recovered/Not Resolved]
  - Acute respiratory failure [Fatal]
  - End stage renal disease [Unknown]
  - Septic shock [Fatal]
